FAERS Safety Report 20205548 (Version 1)
Quarter: 2021Q4

REPORT INFORMATION
  Report Type: Spontaneous
  Country: DE (occurrence: DE)
  Receive Date: 20211220
  Receipt Date: 20211220
  Transmission Date: 20220303
  Serious: Yes (Hospitalization)
  Sender: FDA-Public Use
  Company Number: DE-NOVARTISPH-NVSC2021DE285825

PATIENT
  Age: 79 Year
  Sex: Male

DRUGS (13)
  1. AMITRIPTYLINE [Suspect]
     Active Substance: AMITRIPTYLINE
     Indication: Product used for unknown indication
     Dosage: 40 MG/ML, F?NF TROPFEN ZUR NACHT, TROPFEN
     Route: 048
  2. PREDNISOLONE [Suspect]
     Active Substance: PREDNISOLONE
     Indication: Product used for unknown indication
     Dosage: 5 MG, QD (5 MG, 1-0-0-0, TABLETTEN)
     Route: 048
  3. LACTULOSE [Concomitant]
     Active Substance: LACTULOSE
     Indication: Product used for unknown indication
     Dosage: UNK UNK, QD (1-0-0-0, SAFT)
     Route: 048
  4. TORSEMIDE [Concomitant]
     Active Substance: TORSEMIDE
     Indication: Product used for unknown indication
     Dosage: 10 MG, QD (10 MG, 1-0-0-0, TABLETTEN)
     Route: 048
  5. POTASSIUM CHLORIDE [Concomitant]
     Active Substance: POTASSIUM CHLORIDE
     Indication: Product used for unknown indication
     Dosage: UNK UNK, Q12H (1-0-1-0, TABLETTEN)
     Route: 048
  6. ATORVASTATIN [Concomitant]
     Active Substance: ATORVASTATIN
     Indication: Product used for unknown indication
     Dosage: 20 MG, QD (20 MG, 0-0-1-0, TABLETTEN)
     Route: 048
  7. ZYTIGA [Concomitant]
     Active Substance: ABIRATERONE ACETATE
     Indication: Product used for unknown indication
     Dosage: 500 MG, QD (500 MG, 2-0-0-0, TABLETTEN)
     Route: 048
  8. ASPIRIN [Concomitant]
     Active Substance: ASPIRIN
     Indication: Product used for unknown indication
     Dosage: 100 MG, QD (100 MG, 1-0-0-0, TABLETTEN)
     Route: 048
  9. LEUPROLIDE ACETATE [Concomitant]
     Active Substance: LEUPROLIDE ACETATE
     Indication: Product used for unknown indication
     Dosage: 5 MG, ALLE DREI MONATE EINMAL, FERTIGSPRITZEN
     Route: 030
  10. MORPHINE SULFATE [Concomitant]
     Active Substance: MORPHINE SULFATE
     Indication: Product used for unknown indication
     Dosage: 10 MG (10 MG, BEI BEDARF, TABLETTEN)
     Route: 048
  11. CHOLECALCIFEROL [Concomitant]
     Active Substance: CHOLECALCIFEROL
     Indication: Product used for unknown indication
     Dosage: 20000 IU (20000 IE, EINMAL PRO WOCHE, KAPSELN)
     Route: 048
  12. PROPRANOLOL HYDROCHLORIDE [Concomitant]
     Active Substance: PROPRANOLOL HYDROCHLORIDE
     Indication: Product used for unknown indication
     Dosage: 10 MG, TID (10 MG, 1-1-1-0, TABLETTEN)
     Route: 048
  13. PANTOPRAZOL ACIS [Concomitant]
     Indication: Product used for unknown indication
     Dosage: 20 MG, QD (20 MG, 1-0-0-0, TABLETTEN)
     Route: 048

REACTIONS (2)
  - Tachycardia [Unknown]
  - Vertigo [Unknown]
